FAERS Safety Report 8030453-1 (Version None)
Quarter: 2012Q1

REPORT INFORMATION
  Report Type: 
  Country: None (occurrence: None)
  Receive Date: 20120109
  Receipt Date: 20120105
  Transmission Date: 20120608
  Serious: Yes (Death)
  Sender: FDA-Public Use
  Company Number: PHHY2011CA097521

PATIENT
  Sex: Female
  Weight: 62.7 kg

DRUGS (6)
  1. CARBOCAL D [Concomitant]
     Dosage: UNK UKN, UNK
  2. ASPIRIN [Concomitant]
     Dosage: 80 MG, UNK
  3. LIPITOR [Concomitant]
     Dosage: 40 MG, UNK
  4. DIOVAN [Concomitant]
     Dosage: 1 DF (160/145), UNK
  5. ZOLEDRONOC ACID [Suspect]
     Indication: OSTEOPOROSIS
     Dosage: 5 MG, ANUALLY
     Route: 042
     Dates: start: 20081210
  6. FERROUS SULFATE TAB [Concomitant]
     Dosage: 300 UKN, BID

REACTIONS (1)
  - LUNG NEOPLASM MALIGNANT [None]
